FAERS Safety Report 5638728-8 (Version None)
Quarter: 2008Q1

REPORT INFORMATION
  Report Type: 
  Country: None (occurrence: None)
  Receive Date: 20080226
  Receipt Date: 20080211
  Transmission Date: 20080703
  Serious: Yes (Death)
  Sender: FDA-Public Use
  Company Number: FR-GENENTECH-253678

PATIENT
  Age: 73 Year
  Sex: Female

DRUGS (9)
  1. HERCEPTIN [Suspect]
     Indication: BREAST CANCER
     Dosage: 520 MG, UNK
     Route: 042
     Dates: start: 20071113, end: 20071113
  2. FLUINDIONE [Concomitant]
     Indication: DRUG USE FOR UNKNOWN INDICATION
  3. PENTOXIFYLLINE [Concomitant]
     Indication: DRUG USE FOR UNKNOWN INDICATION
  4. OXYCONTIN [Concomitant]
     Indication: DRUG USE FOR UNKNOWN INDICATION
  5. LYRICA [Concomitant]
     Indication: DRUG USE FOR UNKNOWN INDICATION
  6. EFFERALGAN [Concomitant]
     Indication: DRUG USE FOR UNKNOWN INDICATION
  7. MEDROL [Concomitant]
     Indication: DRUG USE FOR UNKNOWN INDICATION
  8. ENDOTELON [Concomitant]
     Indication: DRUG USE FOR UNKNOWN INDICATION
  9. CONCOMITANT DRUG [Concomitant]
     Indication: DRUG USE FOR UNKNOWN INDICATION

REACTIONS (4)
  - CONFUSIONAL STATE [None]
  - HYPOXIA [None]
  - PYREXIA [None]
  - THROMBOCYTOPENIA [None]
